FAERS Safety Report 13701427 (Version 1)
Quarter: 2017Q2

REPORT INFORMATION
  Report Type: Spontaneous
  Country: US (occurrence: US)
  Receive Date: 20170628
  Receipt Date: 20170628
  Transmission Date: 20170830
  Serious: Yes (Other)
  Sender: FDA-Public Use
  Company Number: None

PATIENT
  Age: 44 Year
  Sex: Female
  Weight: 85.5 kg

DRUGS (3)
  1. OXYCODONE/APAP 7.5/325 [Suspect]
     Active Substance: ACETAMINOPHEN\OXYCODONE HYDROCHLORIDE
     Indication: MULTIPLE SCLEROSIS
     Dosage: ?          OTHER STRENGTH:MG;QUANTITY:90 TABLET(S);?
     Route: 048
     Dates: start: 20170627
  2. OXYCODONE/APAP 7.5/325 [Suspect]
     Active Substance: ACETAMINOPHEN\OXYCODONE HYDROCHLORIDE
     Indication: PAIN
     Dosage: ?          OTHER STRENGTH:MG;QUANTITY:90 TABLET(S);?
     Route: 048
     Dates: start: 20170627
  3. VISTARIL [Concomitant]
     Active Substance: HYDROXYZINE PAMOATE

REACTIONS (1)
  - Hypersensitivity [None]

NARRATIVE: CASE EVENT DATE: 20170628
